FAERS Safety Report 18806251 (Version 1)
Quarter: 2021Q1

REPORT INFORMATION
  Report Type: Not Available
  Country: None (occurrence: None)
  Receive Date: 20210128
  Receipt Date: 20210128
  Transmission Date: 20210419
  Serious: No
  Sender: FDA-Public Use
  Company Number: US-AKORN-159404

PATIENT
  Sex: Female

DRUGS (1)
  1. TIMOLOL MALEATE OPHTHALMIC SOLUTION [Suspect]
     Active Substance: TIMOLOL MALEATE

REACTIONS (1)
  - Dizziness [Not Recovered/Not Resolved]
